FAERS Safety Report 6874933-0 (Version None)
Quarter: 2010Q2

REPORT INFORMATION
  Report Type: 
  Country: None (occurrence: None)
  Receive Date: 20100610
  Receipt Date: 20100312
  Transmission Date: 20101027
  Serious: No
  Sender: FDA-Public Use
  Company Number: 2010SP015689

PATIENT
  Sex: Female

DRUGS (2)
  1. SAPHRIS [Suspect]
     Indication: BIPOLAR DISORDER
     Dosage: 5 MG; BID; SL
     Dates: start: 20100310, end: 20100312
  2. TRAZODONE HCL [Concomitant]

REACTIONS (3)
  - DRUG DEPENDENCE [None]
  - DYSGEUSIA [None]
  - HYPOAESTHESIA ORAL [None]
